FAERS Safety Report 6288678-1 (Version None)
Quarter: 2009Q3

REPORT INFORMATION
  Report Type: 
  Country: None (occurrence: None)
  Receive Date: 20090727
  Receipt Date: 20090713
  Transmission Date: 20100115
  Serious: Yes (Hospitalization)
  Sender: FDA-Public Use
  Company Number: SPV1-2009-01514

PATIENT
  Age: 91 Year
  Sex: Female

DRUGS (11)
  1. MIDODRINE HYDROCHLORIDE [Suspect]
     Indication: HYPOTENSION
     Dosage: 2MG/DOSE, AS REQ'D, OTHER
     Route: 050
     Dates: start: 20090317, end: 20090404
  2. AMLODIPINE BESYLATE [Concomitant]
  3. ASPARA K (ASPARTATE POTASSIUM) [Concomitant]
  4. LOPRESSOR [Concomitant]
  5. LANSOPRAZOLE [Concomitant]
  6. BIO THREE (CLOSTRIDIUM BUTYCRICUM, LACTOBACILLUS ACIDOPHILUS, SACCHARO [Concomitant]
  7. TANNALBIN (ALBUMIN TANNATE) [Concomitant]
  8. RISUMIC (AMEZINIUM METILSULFATE) [Concomitant]
  9. DOPS (DROXIDOPA) [Concomitant]
  10. DIGOXIN [Concomitant]
  11. EPOGIN (EPOETIN BETA) [Concomitant]

REACTIONS (5)
  - DERMATITIS EXFOLIATIVE [None]
  - ERYTHEMA MULTIFORME [None]
  - PEMPHIGOID [None]
  - STEVENS-JOHNSON SYNDROME [None]
  - TOXIC EPIDERMAL NECROLYSIS [None]
